FAERS Safety Report 7432818-5 (Version None)
Quarter: 2011Q2

REPORT INFORMATION
  Report Type: 
  Country: None (occurrence: None)
  Receive Date: 20110415
  Receipt Date: 20110404
  Transmission Date: 20111010
  Serious: Yes (Disabling)
  Sender: FDA-Public Use
  Company Number: ACO_22961_2011

PATIENT
  Age: 47 Year
  Sex: Female
  Weight: 99.8 kg

DRUGS (6)
  1. TYSABRI [Concomitant]
  2. GABAPENTIN [Concomitant]
  3. AMPYRA [Suspect]
     Indication: GAIT DISTURBANCE
     Dosage: 10 MG, BID, ORAL
     Route: 048
     Dates: start: 20110331, end: 20110401
  4. BACLOFEN [Concomitant]
  5. ADVAIR HFA [Concomitant]
  6. SINGULAIR [Concomitant]

REACTIONS (7)
  - PAIN IN EXTREMITY [None]
  - DIZZINESS [None]
  - NAUSEA [None]
  - FEELING ABNORMAL [None]
  - MULTIPLE SCLEROSIS RELAPSE [None]
  - HEADACHE [None]
  - MUSCLE TIGHTNESS [None]
